FAERS Safety Report 23428351 (Version 1)
Quarter: 2024Q1

REPORT INFORMATION
  Report Type: Spontaneous
  Country: US (occurrence: US)
  Receive Date: 20240122
  Receipt Date: 20240122
  Transmission Date: 20240410
  Serious: Yes (Other)
  Sender: FDA-Public Use
  Company Number: US-AMGEN-USASP2024010655

PATIENT
  Age: 53 Year
  Sex: Male

DRUGS (2)
  1. RIABNI [Suspect]
     Active Substance: RITUXIMAB-ARRX
     Indication: Lymphoma
     Dosage: 1000 MG
     Route: 065
  2. BENDEKA [Concomitant]
     Active Substance: BENDAMUSTINE HYDROCHLORIDE

REACTIONS (1)
  - Neutropenia [Unknown]

NARRATIVE: CASE EVENT DATE: 20240105
